FAERS Safety Report 19813923 (Version 1)
Quarter: 2021Q3

REPORT INFORMATION
  Report Type: Spontaneous
  Country: US (occurrence: US)
  Receive Date: 20210910
  Receipt Date: 20210910
  Transmission Date: 20211014
  Serious: No
  Sender: FDA-Public Use
  Company Number: NVSC2021US205676

PATIENT
  Age: 80 Year
  Sex: Male

DRUGS (1)
  1. VOLTAREN [Suspect]
     Active Substance: DICLOFENAC SODIUM
     Indication: PAIN
     Dosage: UNK
     Route: 065
     Dates: start: 2021, end: 2021

REACTIONS (4)
  - Application site rash [Recovering/Resolving]
  - Condition aggravated [Recovering/Resolving]
  - Product use issue [Unknown]
  - Blister [Recovering/Resolving]
